FAERS Safety Report 9660217 (Version 2)
Quarter: 2013Q4

REPORT INFORMATION
  Report Type: Spontaneous
  Country: US (occurrence: US)
  Receive Date: 20131031
  Receipt Date: 20131031
  Transmission Date: 20140711
  Serious: Yes (Other)
  Sender: FDA-Public Use
  Company Number: US-NAPPMUNDI-USA-2011-0066948

PATIENT
  Age: 21 Year
  Sex: Male

DRUGS (1)
  1. OXYCODONE HYDROCHLORIDE (SIMILAR TO NDA 20-553) [Suspect]
     Indication: DRUG ABUSE
     Dosage: UNK
     Dates: start: 2009

REACTIONS (6)
  - Drug dependence [Recovered/Resolved]
  - Drug abuse [Recovered/Resolved]
  - Drug withdrawal syndrome [Unknown]
  - Weight decreased [Unknown]
  - General physical condition abnormal [Unknown]
  - Asthenia [Unknown]
